FAERS Safety Report 6484763-X (Version None)
Quarter: 2009Q4

REPORT INFORMATION
  Report Type: 
  Country: None (occurrence: None)
  Receive Date: 20091209
  Receipt Date: 20090603
  Transmission Date: 20100525
  Serious: No
  Sender: FDA-Public Use
  Company Number: US-AMGEN-KDL350022

PATIENT
  Sex: Female
  Weight: 54 kg

DRUGS (2)
  1. ENBREL [Suspect]
     Indication: JUVENILE ARTHRITIS
     Route: 058
     Dates: start: 20090427, end: 20090529
  2. METHOTREXATE [Concomitant]
     Route: 048

REACTIONS (2)
  - MYALGIA [None]
  - SENSATION OF HEAVINESS [None]
